FAERS Safety Report 12679366 (Version 1)
Quarter: 2016Q3

REPORT INFORMATION
  Report Type: Spontaneous
  Country: US (occurrence: None)
  Receive Date: 20160823
  Receipt Date: 20160823
  Transmission Date: 20161109
  Serious: Yes (Hospitalization)
  Sender: FDA-Public Use
  Company Number: None

PATIENT
  Age: 45 Year
  Sex: Female
  Weight: 65.77 kg

DRUGS (6)
  1. VITAMINS D3 [Concomitant]
  2. LISINOPRIL. [Suspect]
     Active Substance: LISINOPRIL
     Indication: HYPERTENSION
     Route: 048
     Dates: start: 20150915, end: 20160810
  3. MULTIVITAMINS [Concomitant]
     Active Substance: VITAMINS
  4. FISH OIL [Concomitant]
     Active Substance: FISH OIL
  5. LOW-OGESTREL [Concomitant]
     Active Substance: ETHINYL ESTRADIOL\NORGESTREL
  6. HYDROCHLOROTHIAZIDE. [Concomitant]
     Active Substance: HYDROCHLOROTHIAZIDE

REACTIONS (8)
  - Abdominal pain [None]
  - Fatigue [None]
  - Syncope [None]
  - Presyncope [None]
  - Inflammation [None]
  - Hypoaesthesia [None]
  - Abdominal mass [None]
  - Blood pressure decreased [None]

NARRATIVE: CASE EVENT DATE: 20160221
